FAERS Safety Report 4586559-2 (Version None)
Quarter: 2005Q1

REPORT INFORMATION
  Report Type: 
  Country: None (occurrence: None)
  Receive Date: 20050218
  Receipt Date: 20040324
  Transmission Date: 20050727
  Serious: No
  Sender: FDA-Public Use
  Company Number: US-BRISTOL-MYERS SQUIBB COMPANY-12541942

PATIENT
  Age: 72 Year
  Sex: Male

DRUGS (6)
  1. TAXOL [Suspect]
     Indication: NON-SMALL CELL LUNG CANCER
     Route: 042
     Dates: start: 20030319, end: 20030319
  2. ZANTAC [Concomitant]
     Indication: PREMEDICATION
  3. BENADRYL [Concomitant]
     Indication: PREMEDICATION
  4. DECADRON [Concomitant]
     Indication: PREMEDICATION
  5. BLOOD PRESSURE MEDICATION [Concomitant]
     Indication: BLOOD PRESSURE
  6. LORTAB [Concomitant]
     Indication: PAIN

REACTIONS (1)
  - INFUSION SITE REACTION [None]
